FAERS Safety Report 12463847 (Version 1)
Quarter: 2016Q2

REPORT INFORMATION
  Report Type: Spontaneous
  Country: US (occurrence: US)
  Receive Date: 20160614
  Receipt Date: 20160614
  Transmission Date: 20160815
  Serious: Yes (Other)
  Sender: FDA-Public Use
  Company Number: US-SA-2016SA108110

PATIENT
  Age: 63 Year
  Sex: Male

DRUGS (1)
  1. DOXYLAMINE SUCCINATE. [Suspect]
     Active Substance: DOXYLAMINE SUCCINATE
     Indication: INSOMNIA
     Route: 065

REACTIONS (9)
  - Toxicity to various agents [Unknown]
  - Encephalopathy [Recovered/Resolved]
  - Seizure [Unknown]
  - Musculoskeletal pain [Unknown]
  - Joint dislocation [Recovering/Resolving]
  - Rhabdomyolysis [Unknown]
  - Blood lactic acid increased [Unknown]
  - Upper limb fracture [Unknown]
  - Leukocytosis [Unknown]
